FAERS Safety Report 4462031-5 (Version None)
Quarter: 2004Q3

REPORT INFORMATION
  Report Type: 
  Country: None (occurrence: None)
  Receive Date: 20040924
  Receipt Date: 20040924
  Transmission Date: 20050211
  Serious: Yes (Life-Threatening, Hospitalization)
  Sender: FDA-Public Use
  Company Number: None

PATIENT
  Age: 79 Year
  Sex: Male
  Weight: 72.5755 kg

DRUGS (9)
  1. TEQUIN [Suspect]
     Indication: OSTEOMYELITIS
     Dosage: 400 MG DAILY ORAL
     Route: 048
     Dates: start: 20040803
  2. DIOVAN [Concomitant]
  3. LASIX [Concomitant]
  4. LOPRESSOR [Concomitant]
  5. . [Concomitant]
  6. PROSCAR [Concomitant]
  7. LIPITOR [Concomitant]
  8. AVANDIA [Concomitant]
  9. ARICEPT [Concomitant]

REACTIONS (2)
  - DIABETES MELLITUS INSULIN-DEPENDENT [None]
  - HYPERGLYCAEMIA [None]
